FAERS Safety Report 19746557 (Version 3)
Quarter: 2021Q3

REPORT INFORMATION
  Report Type: Report from Study
  Country: IL (occurrence: IL)
  Receive Date: 20210825
  Receipt Date: 20210907
  Transmission Date: 20211014
  Serious: Yes (Hospitalization)
  Sender: FDA-Public Use
  Company Number: IL-KARYOPHARM-2021KPT001067

PATIENT
  Age: 65 Year
  Sex: Male

DRUGS (15)
  1. TARGIN [Concomitant]
     Active Substance: NALOXONE HYDROCHLORIDE\OXYCODONE HYDROCHLORIDE
     Indication: PULMONARY PAIN
     Dosage: 10 MG, PRN
     Route: 048
     Dates: start: 202104
  2. ELTROXIN [Concomitant]
     Active Substance: LEVOTHYROXINE
     Indication: HYPOTHYROIDISM
     Dosage: 50 UG, QD
     Route: 048
     Dates: start: 202103, end: 2021
  3. DEXAMETHASONE. [Concomitant]
     Active Substance: DEXAMETHASONE
     Indication: PROPHYLAXIS
     Dosage: 8 MG, PRN
     Route: 048
     Dates: start: 20210501
  4. DOCETAXEL. [Suspect]
     Active Substance: DOCETAXEL
     Indication: NON-SMALL CELL LUNG CANCER
     Dosage: 75 MG/M2, 1X/3 WEEKS
     Route: 042
     Dates: start: 20210502
  5. ONDANSETRON [Concomitant]
     Active Substance: ONDANSETRON
     Indication: PROPHYLAXIS
     Dosage: 8 MG, QD
     Route: 048
     Dates: start: 20210502
  6. FOLIC ACID. [Concomitant]
     Active Substance: FOLIC ACID
     Indication: PROPHYLAXIS
     Dosage: 5 MG, QD
     Route: 048
     Dates: start: 2019
  7. OLANZAPINE. [Concomitant]
     Active Substance: OLANZAPINE
     Indication: PROPHYLAXIS
     Dosage: 5 MG, QD
     Route: 048
     Dates: start: 20210502
  8. DOCETAXEL. [Suspect]
     Active Substance: DOCETAXEL
     Dosage: 59.14 MG/M2, 1X/3 WEEKS
     Route: 042
     Dates: start: 20210615, end: 20210824
  9. OPTALGIN [Concomitant]
     Active Substance: METAMIZOLE
     Indication: PULMONARY PAIN
     Dosage: 500 MG, PRN
     Route: 048
     Dates: start: 202103
  10. VOLTAREN [DICLOFENAC] [Concomitant]
     Active Substance: DICLOFENAC SODIUM
     Indication: BACK PAIN
     Dosage: 1 %, PRN
     Route: 061
     Dates: start: 20210515
  11. SELINEXOR [Suspect]
     Active Substance: SELINEXOR
     Indication: NON-SMALL CELL LUNG CANCER
     Dosage: 60 MG, WEEKLY
     Route: 048
     Dates: start: 20210502
  12. DOCETAXEL. [Suspect]
     Active Substance: DOCETAXEL
     Dosage: 55 MG/M2, 1X/3 WEEKS
     Route: 042
     Dates: start: 20210824
  13. TRAMADOL. [Concomitant]
     Active Substance: TRAMADOL
     Indication: PULMONARY PAIN
     Dosage: 100 MG, PRN
     Route: 048
     Dates: start: 2020
  14. VITAMIN B12 [Concomitant]
     Active Substance: CYANOCOBALAMIN
     Indication: PROPHYLAXIS
     Dosage: 1200 UG, QD
     Route: 048
     Dates: start: 2020
  15. AZELASTINE. [Concomitant]
     Active Substance: AZELASTINE HYDROCHLORIDE
     Indication: LACRIMATION INCREASED
     Dosage: 8 ML
     Route: 047
     Dates: start: 20210318

REACTIONS (1)
  - Syncope [Recovered/Resolved]

NARRATIVE: CASE EVENT DATE: 20210813
